FAERS Safety Report 7153013-3 (Version None)
Quarter: 2010Q4

REPORT INFORMATION
  Report Type: 
  Country: None (occurrence: None)
  Receive Date: 20101213
  Receipt Date: 20101206
  Transmission Date: 20110411
  Serious: Yes (Other)
  Sender: FDA-Public Use
  Company Number: US-BRACCO-005437

PATIENT
  Sex: Female
  Weight: 3.5 kg

DRUGS (2)
  1. MULTIHANCE [Suspect]
     Indication: NUCLEAR MAGNETIC RESONANCE IMAGING
     Route: 042
     Dates: start: 20101027, end: 20101027
  2. MULTIHANCE [Suspect]
     Indication: NEURAL TUBE DEFECT
     Route: 042
     Dates: start: 20101027, end: 20101027

REACTIONS (3)
  - ACCIDENTAL OVERDOSE [None]
  - NECROTISING COLITIS [None]
  - VOMITING [None]
